FAERS Safety Report 8617339-6 (Version None)
Quarter: 2012Q3

REPORT INFORMATION
  Report Type: 
  Country: None (occurrence: None)
  Receive Date: 20120823
  Receipt Date: 20120802
  Transmission Date: 20120928
  Serious: Yes (Other)
  Sender: FDA-Public Use
  Company Number: JP-MERCK-2012SP024168

PATIENT

DRUGS (29)
  1. PEG-INTRON [Suspect]
     Dosage: 1.25MCG/KG/WEEK
     Route: 058
     Dates: start: 20120203
  2. L CARTIN [Concomitant]
     Indication: PROPHYLAXIS
     Route: 048
     Dates: start: 20120518
  3. REBETOL [Suspect]
     Dosage: 400 MG, QD
     Route: 048
     Dates: start: 20120302
  4. EPADEL [Concomitant]
     Indication: PROPHYLAXIS
     Dosage: 2 DF, QD
     Route: 048
     Dates: start: 20120217
  5. LENDORMIN [Concomitant]
     Indication: PROPHYLAXIS
     Dosage: FORMULATION POR (DETAILS UNSPECIFIED)
     Route: 048
     Dates: start: 20120217
  6. PEG-INTRON [Suspect]
     Dosage: 1.06MCG/KG/WEEK
     Route: 058
     Dates: start: 20120126, end: 20120531
  7. PEGINTERFERON ALFA-2B [Suspect]
     Dosage: 1.25 ?G/KG, QW
     Route: 058
     Dates: start: 20120203
  8. ANTIVIRAL (UNSPECIFIED) [Suspect]
     Dosage: 750 MG, QD
     Route: 048
     Dates: start: 20120330
  9. REBETOL [Suspect]
     Indication: HEPATITIS C
     Dosage: 800 MG, QD
     Route: 048
     Dates: start: 20120111
  10. REBETOL [Suspect]
     Dosage: 600 MG, QD
     Route: 048
     Dates: start: 20120224, end: 20120301
  11. REBETOL [Suspect]
     Route: 048
     Dates: start: 20120518, end: 20120531
  12. PEG-INTRON [Suspect]
     Indication: HEPATITIS C
     Dosage: 1.3MCG/KG/WEEK
     Route: 058
     Dates: start: 20120111, end: 20120224
  13. TELAVIC [Suspect]
     Indication: HEPATITIS C
     Route: 048
     Dates: start: 20120111, end: 20120329
  14. TELAVIC [Suspect]
     Route: 048
     Dates: start: 20120330, end: 20120406
  15. EPADEL S [Concomitant]
     Indication: PROPHYLAXIS
     Route: 048
     Dates: start: 20120217
  16. HANGE-SHASHIN-TO [Concomitant]
     Indication: PROPHYLAXIS
     Route: 048
     Dates: start: 20120217
  17. REBETOL [Suspect]
     Route: 048
     Dates: start: 20120302, end: 20120517
  18. HERBS (UNSPECIFIED) [Concomitant]
     Indication: PROPHYLAXIS
     Dosage: 7.5 G, QD
     Route: 048
     Dates: start: 20120217
  19. PEG-INTRON [Suspect]
     Dosage: ONCE A WEEK
     Route: 058
     Dates: end: 20120125
  20. PEGINTERFERON ALFA-2B [Suspect]
     Dosage: 1.3 ?G/KG, QW
     Route: 058
  21. ANTIVIRAL (UNSPECIFIED) [Suspect]
     Indication: HEPATITIS C
     Dosage: 2250 MG, QD
     Route: 048
     Dates: start: 20120111, end: 20120329
  22. URSO 250 [Concomitant]
     Route: 048
  23. TELAVIC [Suspect]
     Route: 048
     Dates: start: 20120330
  24. REBETOL [Suspect]
     Route: 048
     Dates: start: 20120111, end: 20120223
  25. LORFENAMIN [Concomitant]
     Indication: PROPHYLAXIS
     Dosage: AS NEEDED
     Route: 048
     Dates: start: 20120111, end: 20120124
  26. MUCOSTA [Concomitant]
     Indication: PROPHYLAXIS
     Dosage: FORMULATION POR (DETAILS UNSPECIFIED)
     Route: 048
     Dates: start: 20120118
  27. PEGINTERFERON ALFA-2B [Suspect]
     Indication: HEPATITIS C
     Dosage: 1.56 ?G/KG, QW
     Route: 058
     Dates: start: 20120111
  28. URSO 250 [Concomitant]
     Indication: HEPATITIS C
     Dosage: 6 DF, QD
     Route: 048
  29. LYRICA [Concomitant]
     Indication: PRODUCT USED FOR UNKNOWN INDICATION
     Dosage: 75 MG, QD
     Route: 048
     Dates: start: 20120121

REACTIONS (2)
  - HAEMOGLOBIN DECREASED [None]
  - INTERSTITIAL LUNG DISEASE [None]
